FAERS Safety Report 10386886 (Version 1)
Quarter: 2014Q3

REPORT INFORMATION
  Report Type: Spontaneous
  Country: US (occurrence: None)
  Receive Date: 20140814
  Receipt Date: 20140814
  Transmission Date: 20150326
  Serious: Yes (Other)
  Sender: FDA-Public Use
  Company Number: None

PATIENT
  Age: 05 Year
  Sex: Male
  Weight: 191.1 kg

DRUGS (4)
  1. VITAMIN D [Concomitant]
     Active Substance: CHOLECALCIFEROL
  2. NAPROXEN(NAPROSYN) [Concomitant]
  3. ZARONTIN [Suspect]
     Active Substance: ETHOSUXIMIDE
     Indication: CONVULSION
     Route: 048
     Dates: start: 20130918, end: 20140729
  4. CHOLECALCIFEROL [Concomitant]
     Active Substance: CHOLECALCIFEROL

REACTIONS (1)
  - Lupus-like syndrome [None]

NARRATIVE: CASE EVENT DATE: 20140724
